FAERS Safety Report 20371483 (Version 7)
Quarter: 2022Q1

REPORT INFORMATION
  Report Type: Report from Study
  Country: CN (occurrence: CN)
  Receive Date: 20220124
  Receipt Date: 20220329
  Transmission Date: 20220423
  Serious: Yes (Hospitalization)
  Sender: FDA-Public Use
  Company Number: CN-GLAXOSMITHKLINE-CN2022GSK011543

PATIENT
  Age: 60 Year
  Sex: Female
  Weight: 56.5 kg

DRUGS (6)
  1. NIRAPARIB [Suspect]
     Active Substance: NIRAPARIB
     Indication: Endometrial cancer
     Dosage: 200 MG, QD
     Route: 048
     Dates: start: 20211119, end: 20220112
  2. NIRAPARIB [Suspect]
     Active Substance: NIRAPARIB
     Dosage: UNK
     Route: 048
     Dates: start: 20220119
  3. TEBOTELIMAB [Suspect]
     Active Substance: TEBOTELIMAB
     Indication: Endometrial cancer
     Dosage: 600 MG, Z-Q2W
     Route: 041
     Dates: start: 20211119, end: 20211119
  4. TEBOTELIMAB [Suspect]
     Active Substance: TEBOTELIMAB
     Dosage: 600 MG, Z-Q2W
     Route: 041
     Dates: start: 20211230, end: 20211230
  5. TEBOTELIMAB [Suspect]
     Active Substance: TEBOTELIMAB
     Dosage: UNK
     Route: 041
     Dates: start: 20220119, end: 20220119
  6. LACTULOSE [Concomitant]
     Active Substance: LACTULOSE
     Indication: Constipation
     Dosage: 30 ML, PRN
     Route: 048
     Dates: start: 202012

REACTIONS (4)
  - Alanine aminotransferase increased [Recovered/Resolved]
  - Aspartate aminotransferase increased [Recovered/Resolved]
  - Blood alkaline phosphatase increased [Recovered/Resolved]
  - Gamma-glutamyltransferase increased [Recovered/Resolved]

NARRATIVE: CASE EVENT DATE: 20220112
